FAERS Safety Report 18197515 (Version 1)
Quarter: 2020Q3

REPORT INFORMATION
  Report Type: Spontaneous
  Country: NL (occurrence: NL)
  Receive Date: 20200826
  Receipt Date: 20200826
  Transmission Date: 20201103
  Serious: Yes (Other)
  Sender: FDA-Public Use
  Company Number: NL-AUROBINDO-AUR-APL-2020-044716

PATIENT
  Age: 83 Year
  Sex: Male

DRUGS (10)
  1. QUINAPRIL. [Suspect]
     Active Substance: QUINAPRIL
     Indication: ATRIAL FIBRILLATION
  2. FLUCLOXACILLIN [Suspect]
     Active Substance: FLUCLOXACILLIN
     Indication: ARTHRITIS INFECTIVE
     Dosage: UNK
     Route: 042
  3. METOPROLOL. [Suspect]
     Active Substance: METOPROLOL
     Indication: ATRIAL FIBRILLATION
  4. ACENOCOUMAROL [Suspect]
     Active Substance: ACENOCOUMAROL
     Indication: HYPERTENSION
     Dosage: UNK
     Route: 065
  5. QUINAPRIL. [Suspect]
     Active Substance: QUINAPRIL
     Indication: HYPERTENSION
     Dosage: 10 MILLIGRAM
     Route: 065
  6. ACENOCOUMAROL [Suspect]
     Active Substance: ACENOCOUMAROL
     Indication: ATRIAL FIBRILLATION
  7. METOPROLOL. [Suspect]
     Active Substance: METOPROLOL
     Indication: HYPERTENSION
     Dosage: 100 MILLIGRAM
     Route: 065
  8. CHLORTALIDONE [Suspect]
     Active Substance: CHLORTHALIDONE
     Indication: HYPERTENSION
     Dosage: 25 MILLIGRAM
     Route: 065
  9. CHLORTALIDONE [Suspect]
     Active Substance: CHLORTHALIDONE
     Indication: ATRIAL FIBRILLATION
  10. GENTAMICIN. [Suspect]
     Active Substance: GENTAMICIN
     Indication: ARTHRITIS INFECTIVE
     Dosage: PLACEMENT OF TWO 130 MG GENTAMICIN
     Route: 014

REACTIONS (5)
  - Malaise [Unknown]
  - Vomiting [Unknown]
  - Acute kidney injury [Unknown]
  - Hypotension [Unknown]
  - Renal tubular necrosis [Unknown]
